FAERS Safety Report 10767573 (Version 2)
Quarter: 2015Q1

REPORT INFORMATION
  Report Type: Spontaneous
  Country: FI (occurrence: FI)
  Receive Date: 20150205
  Receipt Date: 20150206
  Transmission Date: 20150721
  Serious: Yes (Hospitalization)
  Sender: FDA-Public Use
  Company Number: FI-ABBVIE-14P-055-1322180-00

PATIENT
  Sex: Male

DRUGS (3)
  1. DUODOPA [Suspect]
     Active Substance: CARBIDOPA\LEVODOPA
     Indication: PARKINSON^S DISEASE
     Dosage: CD 2.6 ML/H FOR 24H. UNSPECIFIED MD AND ED
     Route: 050
     Dates: start: 2011, end: 201412
  2. IMOVANE [Suspect]
     Active Substance: ZOPICLONE
     Indication: PRODUCT USED FOR UNKNOWN INDICATION
     Dosage: 60 PILLS BETWEEN FRIDAY AND MONDAY
     Route: 065
  3. DUODOPA [Suspect]
     Active Substance: CARBIDOPA\LEVODOPA
     Route: 050
     Dates: start: 201412

REACTIONS (7)
  - Myalgia [Recovered/Resolved]
  - Pain in extremity [Unknown]
  - Rash [Unknown]
  - Musculoskeletal stiffness [Not Recovered/Not Resolved]
  - Tremor [Not Recovered/Not Resolved]
  - Overdose [Unknown]
  - Catheter site discharge [Not Recovered/Not Resolved]

NARRATIVE: CASE EVENT DATE: 201412
